FAERS Safety Report 24648587 (Version 1)
Quarter: 2024Q4

REPORT INFORMATION
  Report Type: Spontaneous
  Country: US (occurrence: US)
  Receive Date: 20241121
  Receipt Date: 20241121
  Transmission Date: 20250115
  Serious: Yes (Other)
  Sender: BRISTOL-MYERS SQUIBB COMPANY
  Company Number: US-BRISTOL-MYERS SQUIBB COMPANY-2024-127068

PATIENT
  Age: 80 Year
  Sex: Female

DRUGS (4)
  1. ELIQUIS [Suspect]
     Active Substance: APIXABAN
     Indication: Pulmonary embolism
  2. ELIQUIS [Suspect]
     Active Substance: APIXABAN
     Dates: start: 2024
  3. TUKYSA [Suspect]
     Active Substance: TUCATINIB
     Indication: Breast cancer
     Route: 048
     Dates: start: 20240809
  4. HERCEPTIN [Suspect]
     Active Substance: TRASTUZUMAB
     Indication: Product used for unknown indication

REACTIONS (21)
  - Breast cancer [Unknown]
  - Thyroid mass [Not Recovered/Not Resolved]
  - Cholelithiasis [Unknown]
  - Osteoarthritis [Unknown]
  - Diarrhoea [Unknown]
  - Wound [Recovering/Resolving]
  - Hepatic cyst [Unknown]
  - Renal cyst [Unknown]
  - Infusion related reaction [Unknown]
  - Lymphadenopathy [Recovered/Resolved]
  - Paratracheal lymphadenopathy [Unknown]
  - Pulmonary mass [Recovered/Resolved]
  - Pleural effusion [Recovered/Resolved]
  - Lung opacity [Recovered/Resolved]
  - Atelectasis [Unknown]
  - Bladder dilatation [Unknown]
  - Osteosclerosis [Unknown]
  - Spinal osteoarthritis [Unknown]
  - Lymphadenopathy mediastinal [Recovered/Resolved]
  - Hilar lymphadenopathy [Recovered/Resolved]
  - Lung infiltration [Recovered/Resolved]
